FAERS Safety Report 20472056 (Version 1)
Quarter: 2022Q1

REPORT INFORMATION
  Report Type: Report from Study
  Country: US (occurrence: US)
  Receive Date: 20220214
  Receipt Date: 20220214
  Transmission Date: 20220424
  Serious: Yes (Hospitalization)
  Sender: FDA-Public Use
  Company Number: US-REGENERON PHARMACEUTICALS, INC.-2021-100518

PATIENT

DRUGS (5)
  1. CEMIPLIMAB [Suspect]
     Active Substance: CEMIPLIMAB
     Indication: Lip and/or oral cavity cancer stage 0
     Dosage: 350 MG, WEEKS 2, 5, 8 AND 11
     Route: 042
  2. CETUXIMAB [Suspect]
     Active Substance: CETUXIMAB
     Indication: Lip and/or oral cavity cancer stage 0
     Dosage: 400MG/M2 ON WEEK 1, THEN 250 MG/M2, WEEKLY
     Route: 042
     Dates: start: 20210823, end: 20211101
  3. CISPLATIN [Suspect]
     Active Substance: CISPLATIN
     Indication: Lip and/or oral cavity cancer stage 0
     Dosage: 75 MG/M2, WEEKS 2, 5 AND 8
     Route: 042
  4. DOCETAXEL [Suspect]
     Active Substance: DOCETAXEL
     Indication: Lip and/or oral cavity cancer stage 0
     Dosage: 75 MG/M2, WEEKS 2, 5 AND 8
     Route: 042
  5. CARBOPLATIN [Suspect]
     Active Substance: CARBOPLATIN
     Indication: Lip and/or oral cavity cancer stage 0
     Dosage: AUC 5 ON WEEKS 2, 5 AND 8
     Route: 042

REACTIONS (2)
  - Dyspnoea [Recovered/Resolved]
  - Arthritis [Unknown]

NARRATIVE: CASE EVENT DATE: 20211104
